FAERS Safety Report 23847982 (Version 1)
Quarter: 2024Q2

REPORT INFORMATION
  Report Type: Spontaneous
  Country: US (occurrence: None)
  Receive Date: 20240510
  Receipt Date: 20240510
  Transmission Date: 20240716
  Serious: Yes (Other)
  Sender: FDA-Public Use
  Company Number: None

PATIENT
  Age: 60 Year
  Sex: Female

DRUGS (1)
  1. HUMIRA [Suspect]
     Active Substance: ADALIMUMAB
     Indication: Hidradenitis
     Dosage: FREQUENCY : EVERY OTHER WEEK;?

REACTIONS (5)
  - Intestinal haemorrhage [None]
  - Blood test abnormal [None]
  - Refusal of treatment by patient [None]
  - Feeling cold [None]
  - Pica [None]
